FAERS Safety Report 7863175-8 (Version None)
Quarter: 2011Q4

REPORT INFORMATION
  Report Type: 
  Country: None (occurrence: None)
  Receive Date: 20111027
  Receipt Date: 20101129
  Transmission Date: 20120403
  Serious: No
  Sender: FDA-Public Use
  Company Number: US-AMGEN-USASP2010006977

PATIENT
  Age: 55 Year
  Sex: Female
  Weight: 67.12 kg

DRUGS (3)
  1. ENBREL [Suspect]
     Indication: RHEUMATOID ARTHRITIS
     Dosage: 50 MG, QWK
     Dates: start: 20081201
  2. FOLIC ACID [Concomitant]
  3. FOSAMAX [Concomitant]

REACTIONS (2)
  - HEADACHE [None]
  - STRESS [None]
